FAERS Safety Report 20923479 (Version 1)
Quarter: 2022Q2

REPORT INFORMATION
  Report Type: Report from Study
  Country: CO (occurrence: CO)
  Receive Date: 20220607
  Receipt Date: 20220607
  Transmission Date: 20220721
  Serious: Yes (Hospitalization, Other)
  Sender: FDA-Public Use
  Company Number: CO-ASTELLAS-2022US020034

PATIENT
  Age: 63 Year
  Sex: Female

DRUGS (2)
  1. TACROLIMUS [Suspect]
     Active Substance: TACROLIMUS
     Indication: Heart transplant
     Route: 048
     Dates: start: 20220210
  2. TACROLIMUS [Suspect]
     Active Substance: TACROLIMUS
     Route: 048

REACTIONS (3)
  - Secondary immunodeficiency [Recovered/Resolved]
  - Pulmonary thrombosis [Recovered/Resolved]
  - Pyrexia [Recovered/Resolved]

NARRATIVE: CASE EVENT DATE: 20220210
